FAERS Safety Report 15270039 (Version 1)
Quarter: 2018Q3

REPORT INFORMATION
  Report Type: Spontaneous
  Country: US (occurrence: US)
  Receive Date: 20180726
  Receipt Date: 20180726
  Transmission Date: 20181010
  Serious: No
  Sender: FDA-Public Use
  Company Number: None

PATIENT
  Age: 83 Year
  Sex: Female
  Weight: 63.5 kg

DRUGS (15)
  1. CICLOPIROX SHAMPOO 1% [Suspect]
     Active Substance: CICLOPIROX
     Indication: SEBORRHOEIC DERMATITIS
     Dosage: ?          OTHER ROUTE:SHAMPOO?
     Dates: end: 20180701
  2. SIMVASTATIN. [Concomitant]
     Active Substance: SIMVASTATIN
  3. ESTRACE OIL [Concomitant]
  4. CALCIUM [Concomitant]
     Active Substance: CALCIUM
  5. TOPICORT [Suspect]
     Active Substance: DESOXIMETASONE
     Indication: SEBORRHOEIC DERMATITIS
     Dosage: ?          OTHER ROUTE:SCALP?
     Dates: end: 20180701
  6. DIOVAN [Concomitant]
     Active Substance: VALSARTAN
  7. PRESERVISION [Concomitant]
     Active Substance: MINERALS\VITAMINS
  8. SPIRIVA [Concomitant]
     Active Substance: TIOTROPIUM BROMIDE MONOHYDRATE
  9. FLUOCINOLONE ACETONIDE 0.01% (TOPICAL) [Suspect]
     Active Substance: FLUOCINOLONE ACETONIDE
     Indication: SEBORRHOEIC DERMATITIS
     Dosage: ?          OTHER FREQUENCY:SM. AMT 2?4XDAY;OTHER ROUTE:SCALP?
     Dates: end: 20180701
  10. COMBIVENT [Concomitant]
     Active Substance: ALBUTEROL SULFATE\IPRATROPIUM BROMIDE
  11. VITAMIN C [Concomitant]
     Active Substance: ASCORBIC ACID
  12. METOPROLOL TART. [Concomitant]
  13. SYNTHROID [Concomitant]
     Active Substance: LEVOTHYROXINE SODIUM
  14. VITAMIN E [Concomitant]
     Active Substance: .ALPHA.-TOCOPHEROL
  15. OMEGA Q PLUS 100 WITH RESERVATROL [Concomitant]

REACTIONS (4)
  - Urine odour abnormal [None]
  - Fungal infection [None]
  - Anorectal discomfort [None]
  - Perineal pain [None]

NARRATIVE: CASE EVENT DATE: 20180701
